FAERS Safety Report 12356084 (Version 1)
Quarter: 2016Q2

REPORT INFORMATION
  Report Type: Spontaneous
  Country: US (occurrence: US)
  Receive Date: 20160511
  Receipt Date: 20160511
  Transmission Date: 20160815
  Serious: No
  Sender: FDA-Public Use
  Company Number: US-ACTAVIS-2016-04571

PATIENT
  Sex: Female

DRUGS (1)
  1. MINOXIDIL (AMALLC) [Suspect]
     Active Substance: MINOXIDIL
     Indication: PRODUCT USED FOR UNKNOWN INDICATION
     Dosage: UNK, UNKNOWN
     Route: 061
     Dates: start: 201512, end: 201602

REACTIONS (2)
  - Pruritus [Recovered/Resolved]
  - Scab [Recovered/Resolved]

NARRATIVE: CASE EVENT DATE: 201601
